FAERS Safety Report 16869190 (Version 1)
Quarter: 2019Q3

REPORT INFORMATION
  Report Type: Spontaneous
  Country: FR (occurrence: FR)
  Receive Date: 20190930
  Receipt Date: 20190930
  Transmission Date: 20191005
  Serious: Yes (Hospitalization, Other)
  Sender: FDA-Public Use
  Company Number: FR-ALEXION PHARMACEUTICALS INC.-A201914576

PATIENT
  Age: 65 Year
  Sex: Female

DRUGS (3)
  1. SOLIRIS [Suspect]
     Active Substance: ECULIZUMAB
     Indication: THROMBOTIC MICROANGIOPATHY
     Dosage: 900 MG, QW FOR ONE MONTH
     Route: 065
  2. SOLIRIS [Suspect]
     Active Substance: ECULIZUMAB
     Indication: OFF LABEL USE
     Dosage: 1200 MG, Q2W
     Route: 065
  3. PENICILLIN V                       /00001801/ [Concomitant]
     Active Substance: PENICILLIN V
     Indication: PROPHYLAXIS
     Route: 065

REACTIONS (22)
  - Tachycardia [Unknown]
  - Oedema [Unknown]
  - Complication associated with device [Unknown]
  - Pleural effusion [Unknown]
  - Procalcitonin increased [Unknown]
  - Renal injury [Unknown]
  - Tooth infection [Unknown]
  - Inflammation [Unknown]
  - Interstitial lung disease [Unknown]
  - Sputum abnormal [Unknown]
  - Haemoglobin decreased [Unknown]
  - Acute respiratory failure [Unknown]
  - Fusobacterium infection [Unknown]
  - Blood creatinine increased [Unknown]
  - C-reactive protein increased [Unknown]
  - N-terminal prohormone brain natriuretic peptide increased [Unknown]
  - Sputum discoloured [Unknown]
  - Haemolysis [Unknown]
  - Lung disorder [Unknown]
  - Hypertension [Unknown]
  - Off label use [Unknown]
  - Rales [Unknown]
